APPROVED DRUG PRODUCT: METHOTREXATE SODIUM
Active Ingredient: METHOTREXATE SODIUM
Strength: EQ 25MG BASE/ML
Dosage Form/Route: INJECTABLE;INJECTION
Application: A089158 | Product #001
Applicant: PHARMACHEMIE USA INC
Approved: Jul 8, 1988 | RLD: No | RS: No | Type: DISCN